FAERS Safety Report 19918810 (Version 1)
Quarter: 2021Q4

REPORT INFORMATION
  Report Type: Spontaneous
  Country: JP (occurrence: JP)
  Receive Date: 20211005
  Receipt Date: 20211005
  Transmission Date: 20220303
  Serious: Yes (Other)
  Sender: FDA-Public Use
  Company Number: 2021A538999

PATIENT
  Age: 35 Year
  Sex: Female

DRUGS (2)
  1. LYNPARZA [Suspect]
     Active Substance: OLAPARIB
     Indication: Pancreatic carcinoma
     Route: 048
     Dates: start: 20210524, end: 202108
  2. ALPRAZOLAM [Concomitant]
     Active Substance: ALPRAZOLAM

REACTIONS (3)
  - Malignant neoplasm progression [Not Recovered/Not Resolved]
  - Decreased appetite [Recovering/Resolving]
  - Malaise [Recovering/Resolving]

NARRATIVE: CASE EVENT DATE: 20210524
